FAERS Safety Report 11189304 (Version 1)
Quarter: 2015Q2

REPORT INFORMATION
  Report Type: Report from Study
  Country: US (occurrence: US)
  Receive Date: 20150615
  Receipt Date: 20150615
  Transmission Date: 20150821
  Serious: Yes (Hospitalization)
  Sender: FDA-Public Use
  Company Number: US-BEH-2015051687

PATIENT
  Sex: Female

DRUGS (1)
  1. HIZENTRA [Suspect]
     Active Substance: HUMAN IMMUNOGLOBULIN G
     Indication: PRODUCT USED FOR UNKNOWN INDICATION
     Route: 058

REACTIONS (7)
  - Heart rate abnormal [Unknown]
  - Hyperhidrosis [Unknown]
  - PO2 decreased [Unknown]
  - Gastrointestinal hypomotility [Unknown]
  - Autonomic nervous system imbalance [Unknown]
  - Neuropathy peripheral [Unknown]
  - Postural orthostatic tachycardia syndrome [Unknown]
